FAERS Safety Report 13350021 (Version 3)
Quarter: 2017Q2

REPORT INFORMATION
  Report Type: Spontaneous
  Country: SE (occurrence: SE)
  Receive Date: 20170320
  Receipt Date: 20170509
  Transmission Date: 20170830
  Serious: Yes (Other)
  Sender: FDA-Public Use
  Company Number: SE-NOVOPROD-535412

PATIENT
  Age: 4 Year
  Sex: Male
  Weight: 18.5 kg

DRUGS (5)
  1. NOVORAPID [Suspect]
     Active Substance: INSULIN ASPART
     Indication: TYPE 1 DIABETES MELLITUS
     Dosage: 8-17 UNITS
     Route: 058
     Dates: start: 20160718
  2. NOVORAPID [Suspect]
     Active Substance: INSULIN ASPART
     Dosage: 17-18 IU
     Route: 058
     Dates: start: 201703
  3. NOVORAPID [Suspect]
     Active Substance: INSULIN ASPART
     Dosage: UNK
     Route: 058
     Dates: start: 201612
  4. NOVORAPID [Suspect]
     Active Substance: INSULIN ASPART
     Dosage: 9-11 IU
     Route: 058
     Dates: start: 201701
  5. NOVORAPID [Suspect]
     Active Substance: INSULIN ASPART
     Dosage: UNK
     Route: 058

REACTIONS (4)
  - Blood glucose increased [Recovered/Resolved]
  - Blood glucose decreased [Recovered/Resolved]
  - Product quality issue [Unknown]
  - Drug ineffective [Unknown]

NARRATIVE: CASE EVENT DATE: 201612
